FAERS Safety Report 5130963-0 (Version None)
Quarter: 2006Q3

REPORT INFORMATION
  Report Type: 
  Country: None (occurrence: None)
  Receive Date: 20060829
  Receipt Date: 20060614
  Transmission Date: 20061208
  Serious: No
  Sender: FDA-Public Use
  Company Number: PHEH2006US07784

PATIENT
  Sex: Female

DRUGS (1)
  1. EXJADE [Suspect]
     Indication: BLOOD IRON INCREASED
     Dosage: 625 MG, QD, ORAL
     Route: 048
     Dates: start: 20060527, end: 20060610

REACTIONS (3)
  - DYSPEPSIA [None]
  - NAUSEA [None]
  - SLEEP DISORDER [None]
